FAERS Safety Report 13109069 (Version 2)
Quarter: 2017Q1

REPORT INFORMATION
  Report Type: Spontaneous
  Country: DE (occurrence: DE)
  Receive Date: 20170112
  Receipt Date: 20170220
  Transmission Date: 20170428
  Serious: Yes (Life-Threatening)
  Sender: FDA-Public Use
  Company Number: DE-BAYER-2017-005051

PATIENT
  Age: 40 Year
  Sex: Female

DRUGS (1)
  1. JAYDESS [Suspect]
     Active Substance: LEVONORGESTREL
     Dosage: 14 MCG/24HR, CONT
     Route: 015

REACTIONS (5)
  - Ectopic pregnancy with contraceptive device [None]
  - Drug ineffective [None]
  - Peritoneal haemorrhage [None]
  - Weight increased [None]
  - Abdominal pain upper [None]

NARRATIVE: CASE EVENT DATE: 20160815
